FAERS Safety Report 6125393-9 (Version None)
Quarter: 2009Q1

REPORT INFORMATION
  Report Type: 
  Country: None (occurrence: None)
  Receive Date: 20090318
  Receipt Date: 20090304
  Transmission Date: 20090719
  Serious: Yes (Hospitalization)
  Sender: FDA-Public Use
  Company Number: 1000005132

PATIENT
  Age: 47 Year
  Sex: Male

DRUGS (1)
  1. ESCITALOPRAM [Suspect]
     Dosage: 10 MG (10 MG, 1 IN 1 D), ORAL
     Route: 048
     Dates: start: 20080902, end: 20080905

REACTIONS (6)
  - FEELING ABNORMAL [None]
  - HALLUCINATION, VISUAL [None]
  - RESTLESSNESS [None]
  - SELF INJURIOUS BEHAVIOUR [None]
  - SLEEP DISORDER [None]
  - UNEVALUABLE EVENT [None]
